FAERS Safety Report 4426734-0 (Version None)
Quarter: 2004Q3

REPORT INFORMATION
  Report Type: 
  Country: None (occurrence: None)
  Receive Date: 20040816
  Receipt Date: 20040804
  Transmission Date: 20050211
  Serious: Yes (Hospitalization, Disabling)
  Sender: FDA-Public Use
  Company Number: IT-ROCHE-376525

PATIENT
  Age: 53 Year
  Sex: Female
  Weight: 60 kg

DRUGS (3)
  1. PEG-INTERFERON ALFA 2A (RO 25-8310) [Suspect]
     Route: 058
     Dates: start: 20030901, end: 20040714
  2. RIBAVIRIN [Suspect]
     Route: 048
     Dates: start: 20030901, end: 20040714
  3. KETOPROFEN [Suspect]
     Route: 048
     Dates: start: 20030901, end: 20040714

REACTIONS (1)
  - HYPOACUSIS [None]
